FAERS Safety Report 21275443 (Version 1)
Quarter: 2022Q3

REPORT INFORMATION
  Report Type: Spontaneous
  Country: US (occurrence: None)
  Receive Date: 20220831
  Receipt Date: 20220831
  Transmission Date: 20221027
  Serious: Yes (Disabling)
  Sender: FDA-Public Use
  Company Number: None

PATIENT
  Age: 78 Year
  Sex: Male
  Weight: 117.93 kg

DRUGS (16)
  1. LATANOPROST [Suspect]
     Active Substance: LATANOPROST
     Indication: Glaucoma
     Dates: start: 20220320, end: 20220321
  2. HUMALOG [Concomitant]
     Active Substance: INSULIN LISPRO
  3. Lorattab [Concomitant]
  4. ASPIRIN [Concomitant]
     Active Substance: ASPIRIN
  5. LEVOCETIRIZINE [Concomitant]
     Active Substance: LEVOCETIRIZINE
  6. HUMULIN NOS [Concomitant]
     Active Substance: INSULIN HUMAN
  7. FARXIGA [Concomitant]
     Active Substance: DAPAGLIFLOZIN PROPANEDIOL
  8. CLOPIDOGREL [Concomitant]
     Active Substance: CLOPIDOGREL BISULFATE
  9. OZEMPIC [Concomitant]
     Active Substance: SEMAGLUTIDE
  10. TAMSULOSIN [Concomitant]
     Active Substance: TAMSULOSIN
  11. VITAMIN D2 [Concomitant]
     Active Substance: ERGOCALCIFEROL
  12. ALLOPURINOL [Concomitant]
     Active Substance: ALLOPURINOL
  13. LOSARTAN [Concomitant]
     Active Substance: LOSARTAN
  14. METOPROLOL SUCCINATE [Concomitant]
     Active Substance: METOPROLOL SUCCINATE
  15. CALCIUM CARBONATE\ERGOCALCIFEROL\RETINOL [Concomitant]
     Active Substance: CALCIUM CARBONATE\ERGOCALCIFEROL\RETINOL
  16. ACETAMINOPHEN [Concomitant]
     Active Substance: ACETAMINOPHEN

REACTIONS (4)
  - Eye irritation [None]
  - Eye pain [None]
  - Vision blurred [None]
  - Product substitution issue [None]

NARRATIVE: CASE EVENT DATE: 20220320
